FAERS Safety Report 8216941-3 (Version None)
Quarter: 2012Q1

REPORT INFORMATION
  Report Type: 
  Country: None (occurrence: None)
  Receive Date: 20120314
  Receipt Date: 20120305
  Transmission Date: 20120608
  Serious: Yes (Other)
  Sender: FDA-Public Use
  Company Number: AUR-APL-2012-01116

PATIENT
  Age: 53 Year
  Sex: Male

DRUGS (1)
  1. TERBINAFINE (TERBINAFINE) [Suspect]
     Indication: ONYCHOMYCOSIS
     Dosage: 250 MG (250 MG, 1 IN 1 D), UNKNOWN
     Dates: start: 20120111, end: 20120208

REACTIONS (3)
  - IMPAIRED DRIVING ABILITY [None]
  - CONVULSION [None]
  - IMPAIRED WORK ABILITY [None]
